FAERS Safety Report 8925395 (Version 1)
Quarter: 2012Q4

REPORT INFORMATION
  Report Type: 
  Country: US (occurrence: US)
  Receive Date: 20121126
  Receipt Date: 20121126
  Transmission Date: 20130627
  Serious: No
  Sender: FDA-Public Use
  Company Number: US-PFIZER INC-2012294919

PATIENT
  Age: 63 Year
  Sex: Female
  Weight: 104 kg

DRUGS (5)
  1. LYRICA [Suspect]
     Indication: NERVE DAMAGE
     Dosage: 50 mg, two or three times a day
  2. LYRICA [Suspect]
     Dosage: 75 mg, 2x/day
  3. LYRICA [Suspect]
     Dosage: UNK
  4. LISINOPRIL [Concomitant]
     Indication: BLOOD PRESSURE HIGH
     Dosage: UNK
  5. PROZAC [Concomitant]
     Indication: DEPRESSION
     Dosage: 40 mg, daily

REACTIONS (3)
  - Drug ineffective [Unknown]
  - Drug therapy changed [Unknown]
  - Pain [Not Recovered/Not Resolved]
